FAERS Safety Report 19268467 (Version 1)
Quarter: 2021Q2

REPORT INFORMATION
  Report Type: Spontaneous
  Country: US (occurrence: US)
  Receive Date: 20210518
  Receipt Date: 20210518
  Transmission Date: 20210717
  Serious: Yes (Other)
  Sender: FDA-Public Use
  Company Number: US-BAYER-2021-142404

PATIENT
  Age: 19 Year
  Sex: Female

DRUGS (1)
  1. SKYLA [Suspect]
     Active Substance: LEVONORGESTREL
     Indication: CONTRACEPTION
     Dosage: 14  ?G PER DAY, CONTINUOUSLY
     Route: 015
     Dates: start: 20190807, end: 20210513

REACTIONS (2)
  - Device dislocation [Recovered/Resolved]
  - Medical device pain [None]
